FAERS Safety Report 13181473 (Version 1)
Quarter: 2017Q1

REPORT INFORMATION
  Report Type: Report from Study
  Country: US (occurrence: US)
  Receive Date: 20170202
  Receipt Date: 20170202
  Transmission Date: 20170428
  Serious: Yes (Hospitalization, Other)
  Sender: FDA-Public Use
  Company Number: US-EISAI MEDICAL RESEARCH-EC-2016-017800

PATIENT
  Sex: Female
  Weight: 70.3 kg

DRUGS (39)
  1. CENTRUM SILVER WOMEN [Concomitant]
  2. CALCIUM [Concomitant]
     Active Substance: CALCIUM
  3. LENVIMA [Suspect]
     Active Substance: LENVATINIB
     Route: 048
     Dates: start: 201608, end: 201701
  4. PANTOPRAZOLE [Concomitant]
     Active Substance: PANTOPRAZOLE SODIUM
  5. DEXILANT [Concomitant]
     Active Substance: DEXLANSOPRAZOLE
  6. LENVIMA [Suspect]
     Active Substance: LENVATINIB
     Indication: THYROID CANCER
     Route: 048
     Dates: start: 20160507, end: 2016
  7. VITAMIN D [Concomitant]
     Active Substance: CHOLECALCIFEROL
  8. LOPERAMIDE [Concomitant]
     Active Substance: LOPERAMIDE
  9. ADVAIR HFA [Concomitant]
     Active Substance: FLUTICASONE PROPIONATE\SALMETEROL XINAFOATE
  10. PROAIR HFA [Concomitant]
     Active Substance: ALBUTEROL SULFATE
  11. PREDNISONE. [Concomitant]
     Active Substance: PREDNISONE
  12. SPIRIVA [Concomitant]
     Active Substance: TIOTROPIUM BROMIDE MONOHYDRATE
  13. FOLIC ACID. [Concomitant]
     Active Substance: FOLIC ACID
  14. CODEINE-GUAIFENESIN [Concomitant]
     Active Substance: CODEINE PHOSPHATE\GUAIFENESIN
  15. ZOLOFT [Concomitant]
     Active Substance: SERTRALINE HYDROCHLORIDE
  16. RELPAX [Concomitant]
     Active Substance: ELETRIPTAN HYDROBROMIDE
  17. VENTOLIN [Concomitant]
     Active Substance: ALBUTEROL SULFATE
  18. ATORVASTATIN [Concomitant]
     Active Substance: ATORVASTATIN
  19. NYSTATIN. [Concomitant]
     Active Substance: NYSTATIN
  20. MACROBID [Concomitant]
     Active Substance: NITROFURANTOIN\NITROFURANTOIN MONOHYDRATE
  21. NORVASC [Concomitant]
     Active Substance: AMLODIPINE BESYLATE
  22. PRECOCET [Concomitant]
  23. SYNTHROID [Concomitant]
     Active Substance: LEVOTHYROXINE SODIUM
  24. DULERA [Concomitant]
     Active Substance: FORMOTEROL FUMARATE DIHYDRATE\MOMETASONE FUROATE
  25. GLYCOPYRROLATE. [Concomitant]
     Active Substance: GLYCOPYRROLATE
  26. PROBIOTIC [Concomitant]
     Active Substance: PROBIOTICS NOS
  27. LOPHEN [Concomitant]
  28. Q VAR [Concomitant]
  29. CODEINE COUGH SYRUP [Concomitant]
     Active Substance: CODEINE
  30. NITROFURANTOIN. [Concomitant]
     Active Substance: NITROFURANTOIN
  31. SERTRALINE [Concomitant]
     Active Substance: SERTRALINE HYDROCHLORIDE
  32. TUSSIN [Concomitant]
     Active Substance: GUAIFENESIN
  33. ZYRTEC [Concomitant]
     Active Substance: CETIRIZINE HYDROCHLORIDE
  34. POTASSIUM CHLORIDE. [Concomitant]
     Active Substance: POTASSIUM CHLORIDE
  35. HYDRALAZINE [Concomitant]
     Active Substance: HYDRALAZINE HYDROCHLORIDE
  36. HYDROXYCHLOROQUINE SULFATE. [Concomitant]
     Active Substance: HYDROXYCHLOROQUINE SULFATE
  37. ALBUTEROL. [Concomitant]
     Active Substance: ALBUTEROL
  38. METAMUCIL [Concomitant]
     Active Substance: PLANTAGO SEED
  39. FLUCONAZOLE. [Concomitant]
     Active Substance: FLUCONAZOLE

REACTIONS (6)
  - Influenza [Unknown]
  - Respiratory tract infection [Unknown]
  - Blood pressure increased [Unknown]
  - Abscess [Unknown]
  - Pyrexia [Recovered/Resolved]
  - Pulmonary haemorrhage [Unknown]

NARRATIVE: CASE EVENT DATE: 2016
